FAERS Safety Report 8963929 (Version 1)
Quarter: 2012Q4

REPORT INFORMATION
  Report Type: Report from Study
  Country: CA (occurrence: CA)
  Receive Date: 20121214
  Receipt Date: 20121214
  Transmission Date: 20130627
  Serious: Yes (Hospitalization)
  Sender: FDA-Public Use
  Company Number: CA-ABBOTT-12P-028-1021492-00

PATIENT
  Sex: Male

DRUGS (6)
  1. HUMIRA [Suspect]
     Indication: PRODUCT USED FOR UNKNOWN INDICATION
     Dosage: Loading dose
     Route: 058
     Dates: start: 20120319, end: 20120319
  2. HUMIRA [Suspect]
     Dosage: Loading dose at week 2
     Route: 058
     Dates: start: 20120402, end: 20120402
  3. HUMIRA [Suspect]
     Route: 058
     Dates: start: 20120416, end: 201212
  4. HUMIRA [Suspect]
     Route: 058
     Dates: start: 201212
  5. IMURAN [Concomitant]
     Indication: PRODUCT USED FOR UNKNOWN INDICATION
  6. PREDNISON [Concomitant]
     Indication: PRODUCT USED FOR UNKNOWN INDICATION

REACTIONS (1)
  - Hospitalisation [Recovered/Resolved]
